FAERS Safety Report 23019611 (Version 1)
Quarter: 2023Q4

REPORT INFORMATION
  Report Type: Spontaneous
  Country: JP (occurrence: JP)
  Receive Date: 20231003
  Receipt Date: 20231003
  Transmission Date: 20240109
  Serious: Yes (Other)
  Sender: FDA-Public Use
  Company Number: JP-CLINIGEN-JP-CLGN-23-00172

PATIENT
  Sex: Male

DRUGS (4)
  1. DEXRAZOXANE [Suspect]
     Active Substance: DEXRAZOXANE
     Indication: Chemotherapy cardiotoxicity attenuation
     Dosage: UNK
     Route: 041
     Dates: start: 20230322, end: 20230322
  2. DEXRAZOXANE [Suspect]
     Active Substance: DEXRAZOXANE
     Dosage: UNK
     Route: 041
     Dates: start: 20230323, end: 20230323
  3. DEXRAZOXANE [Suspect]
     Active Substance: DEXRAZOXANE
     Dosage: UNK
     Route: 041
     Dates: start: 20230621, end: 20230621
  4. DEXRAZOXANE [Suspect]
     Active Substance: DEXRAZOXANE
     Dosage: UNK
     Route: 041
     Dates: start: 20230622, end: 20230622

REACTIONS (1)
  - Off label use [Unknown]
